FAERS Safety Report 9887510 (Version 1)
Quarter: 2013Q4

REPORT INFORMATION
  Report Type: Spontaneous
  Country: US (occurrence: None)
  Receive Date: 20131223
  Receipt Date: 20131223
  Transmission Date: 20140711
  Serious: Yes (Other)
  Sender: FDA-Public Use
  Company Number: 220675LEO

PATIENT
  Age: 42 Year
  Sex: Female

DRUGS (3)
  1. PICATO (0.015 %, GEL) [Suspect]
     Indication: ACTINIC KERATOSIS
     Dosage: (DAILY FOR 3 DAYS)
     Route: 061
     Dates: start: 20130222, end: 20130224
  2. AQUAFOR (XIPAMIDE) [Concomitant]
  3. CREAM (DESONIDE) (CREAM) [Concomitant]

REACTIONS (6)
  - Application site dryness [None]
  - Skin tightness [None]
  - Application site pain [None]
  - Application site exfoliation [None]
  - Drug administered at inappropriate site [None]
  - Off label use [None]
